FAERS Safety Report 10234235 (Version 1)
Quarter: 2014Q1

REPORT INFORMATION
  Report Type: Spontaneous
  Country: US (occurrence: None)
  Receive Date: 20140306
  Receipt Date: 20140306
  Transmission Date: 20141002
  Serious: Yes (Hospitalization)
  Sender: FDA-Public Use
  Company Number: 163-21880-13120244

PATIENT
  Sex: Male

DRUGS (4)
  1. REVLIMID (LENALIDOMIDE)(10 MILLIGRAM, CAPSULES) [Suspect]
     Indication: PLASMA CELL MYELOMA
     Route: 048
     Dates: start: 20070130
  2. MAGNESIUM SULFATE (MAGNESIUM SULFATE) (UNKNOWN) [Concomitant]
  3. DIALYVITE (DIALYVITE)(UNKNOWN) [Concomitant]
  4. PERCOCET (OXYCOCET) (UNKNOWN) [Concomitant]

REACTIONS (3)
  - Weight decreased [None]
  - Decreased appetite [None]
  - Nausea [None]
